FAERS Safety Report 6272373-9 (Version None)
Quarter: 2009Q3

REPORT INFORMATION
  Report Type: 
  Country: None (occurrence: None)
  Receive Date: 20090717
  Receipt Date: 20090716
  Transmission Date: 20100115
  Serious: Yes (Death, Hospitalization)
  Sender: FDA-Public Use
  Company Number: BR-ABBOTT-09P-020-0568072-00

PATIENT
  Age: 51 Year
  Sex: Female

DRUGS (2)
  1. HUMIRA [Suspect]
     Indication: RHEUMATOID ARTHRITIS
     Dosage: TOTAL OF 2 INJECTIONS
     Route: 058
     Dates: start: 20090218, end: 20090301
  2. MODURETIC 5-50 [Concomitant]
     Indication: HYPERTENSION

REACTIONS (5)
  - HEPATITIS A ANTIBODY POSITIVE [None]
  - LUNG INFILTRATION [None]
  - RESPIRATORY FAILURE [None]
  - SEPSIS [None]
  - TRANSAMINASES ABNORMAL [None]
